FAERS Safety Report 9708974 (Version 1)
Quarter: 2013Q4

REPORT INFORMATION
  Report Type: Spontaneous
  Country: NL (occurrence: None)
  Receive Date: 20131122
  Receipt Date: 20131122
  Transmission Date: 20140711
  Serious: Yes (Disabling)
  Sender: FDA-Public Use
  Company Number: 2018946

PATIENT
  Age: 66 Year
  Sex: Female
  Weight: 80 kg

DRUGS (5)
  1. DOCETAXEL [Suspect]
     Indication: BREAST CANCER
     Dosage: 1 DF DOSAGE FORM, 1 WEEK, OTHER
     Dates: start: 20120907, end: 20120928
  2. SIMVASTATINE [Concomitant]
  3. ENALAPRIL W/ HYDROCHLOROTHIAZIDE) [Concomitant]
  4. CYCLOPHOSPHAMIDE W/EPIRUBICIN/FLUOROURACIL [Concomitant]
  5. PACILTAXEL [Concomitant]

REACTIONS (4)
  - Neurological symptom [None]
  - Impaired work ability [None]
  - Gait disturbance [None]
  - Ageusia [None]
